FAERS Safety Report 9594021 (Version 3)
Quarter: 2013Q4

REPORT INFORMATION
  Report Type: Spontaneous
  Country: US (occurrence: US)
  Receive Date: 20131004
  Receipt Date: 20131127
  Transmission Date: 20140711
  Serious: Yes (Other)
  Sender: FDA-Public Use
  Company Number: US-ELI_LILLY_AND_COMPANY-US201309010335

PATIENT
  Age: 24 Year
  Sex: Male
  Weight: 71.66 kg

DRUGS (1)
  1. HUMULIN NPH [Suspect]
     Indication: TYPE 1 DIABETES MELLITUS
     Dosage: 18 U, BID
     Dates: start: 1989

REACTIONS (7)
  - Gallbladder cancer [Unknown]
  - Rectal haemorrhage [Unknown]
  - Blood urine present [Recovered/Resolved]
  - Blood glucose increased [Unknown]
  - Rash [Unknown]
  - Infection [Unknown]
  - Blood glucose decreased [Unknown]
